FAERS Safety Report 24280919 (Version 2)
Quarter: 2024Q3

REPORT INFORMATION
  Report Type: Spontaneous
  Country: US (occurrence: US)
  Receive Date: 20240904
  Receipt Date: 20240905
  Transmission Date: 20241016
  Serious: No
  Sender: MERCK
  Company Number: US-009507513-2409USA000931

PATIENT

DRUGS (2)
  1. WELIREG [Suspect]
     Active Substance: BELZUTIFAN
     Indication: Renal cell carcinoma
     Dosage: 3 PILLS
     Route: 048
     Dates: start: 202303, end: 202407
  2. WELIREG [Suspect]
     Active Substance: BELZUTIFAN
     Indication: Renal cancer recurrent
     Dosage: 2 PILLS
     Route: 048
     Dates: start: 202407

REACTIONS (3)
  - Anaemia [Unknown]
  - Ill-defined disorder [Unknown]
  - Incorrect dose administered [Unknown]

NARRATIVE: CASE EVENT DATE: 20240701
